FAERS Safety Report 8099799-5 (Version None)
Quarter: 2012Q1

REPORT INFORMATION
  Report Type: 
  Country: None (occurrence: None)
  Receive Date: 20120129
  Receipt Date: 20111010
  Transmission Date: 20120608
  Serious: Yes (Other)
  Sender: FDA-Public Use
  Company Number: US-ABBOTT-11P-163-0862379-00

PATIENT
  Sex: Female

DRUGS (2)
  1. HUMIRA [Suspect]
     Indication: PSORIATIC ARTHROPATHY
     Route: 058
     Dates: start: 20090201, end: 20110801
  2. HUMIRA [Suspect]
     Route: 058
     Dates: start: 20110928

REACTIONS (6)
  - ERYTHEMA [None]
  - IMPAIRED HEALING [None]
  - SKIN DISCOLOURATION [None]
  - PRURITUS [None]
  - FEELING HOT [None]
  - STAPHYLOCOCCAL INFECTION [None]
